FAERS Safety Report 13985609 (Version 1)
Quarter: 2017Q3

REPORT INFORMATION
  Report Type: Spontaneous
  Country: US (occurrence: US)
  Receive Date: 20170918
  Receipt Date: 20170918
  Transmission Date: 20171128
  Serious: Yes (Other)
  Sender: FDA-Public Use
  Company Number: None

PATIENT
  Sex: Female
  Weight: 79 kg

DRUGS (1)
  1. AMOXICILLIN 500 MG CAPSULE [Suspect]
     Active Substance: AMOXICILLIN SODIUM
     Indication: NASOPHARYNGITIS
     Dosage: ?          QUANTITY:1 CAPSULE(S);?EVERY 8 HOURS ORAL
     Route: 048
     Dates: start: 20170831, end: 20170903

REACTIONS (6)
  - Pruritus [None]
  - Pain [None]
  - Insomnia [None]
  - Rash [None]
  - Loss of personal independence in daily activities [None]
  - Skin irritation [None]

NARRATIVE: CASE EVENT DATE: 20170902
